FAERS Safety Report 11833656 (Version 6)
Quarter: 2016Q1

REPORT INFORMATION
  Report Type: Report from Study
  Country: JP (occurrence: JP)
  Receive Date: 20151214
  Receipt Date: 20160126
  Transmission Date: 20160525
  Serious: Yes (Life-Threatening, Hospitalization)
  Sender: FDA-Public Use
  Company Number: JP-TAKEDA-2015TJP023460

PATIENT
  Age: 74 Year
  Sex: Female
  Weight: 54.1 kg

DRUGS (17)
  1. ISODINE [Concomitant]
     Active Substance: POVIDONE-IODINE
     Indication: INFECTION PROPHYLAXIS
     Dosage: UNK
     Route: 048
     Dates: start: 2011
  2. LENDORMIN [Concomitant]
     Active Substance: BROTIZOLAM
     Indication: INSOMNIA
     Dosage: UNK
     Route: 048
     Dates: start: 2012
  3. DEXAMETHASONE. [Suspect]
     Active Substance: DEXAMETHASONE
     Indication: PLASMA CELL MYELOMA
     Dosage: 40 MG, 1/WEEK
     Route: 048
     Dates: start: 20151110, end: 20151208
  4. MOHRUS L [Concomitant]
     Active Substance: KETOPROFEN
     Indication: SPINAL COLUMN STENOSIS
     Dosage: 40 MG, QD
     Route: 062
     Dates: start: 2001
  5. TAKEPRON [Concomitant]
     Active Substance: LANSOPRAZOLE
     Indication: GASTRIC DISORDER
     Dosage: 30 MG, QD
     Route: 048
     Dates: start: 2005
  6. MAGLAX [Concomitant]
     Active Substance: MAGNESIUM OXIDE
     Indication: CONSTIPATION
     Dosage: 1 DF, TID
     Route: 048
     Dates: start: 20051201
  7. VIVIANT [Concomitant]
     Active Substance: BAZEDOXIFENE
     Indication: OSTEOPOROSIS
     Dosage: 20 MG, QD
     Route: 048
     Dates: start: 201505
  8. TENELIA [Concomitant]
     Active Substance: TENELIGLIPTIN
     Indication: DIABETES MELLITUS
     Dosage: 20 MG, QD
     Route: 048
     Dates: start: 2005
  9. EDIROL [Concomitant]
     Active Substance: ELDECALCITOL
     Indication: OSTEOPOROSIS
     Dosage: 0.75 ?G, QD
     Route: 048
     Dates: start: 20151125
  10. MEDICON                            /00048102/ [Concomitant]
     Active Substance: DEXTROMETHORPHAN HYDROBROMIDE
     Indication: OROPHARYNGEAL PAIN
     Dosage: 15 MG, TID
     Route: 048
     Dates: start: 20151208
  11. SANCOBA [Concomitant]
     Active Substance: CYANOCOBALAMIN
     Indication: ASTHENOPIA
     Dosage: UNK
     Route: 047
     Dates: start: 2014
  12. BAYASPIRIN [Concomitant]
     Active Substance: ASPIRIN
     Indication: THROMBOSIS PROPHYLAXIS
     Dosage: 100 MG, QD
     Route: 048
     Dates: start: 2005
  13. CARBOCISTEINE [Concomitant]
     Active Substance: CARBOCYSTEINE
     Indication: OROPHARYNGEAL PAIN
     Dosage: 500 MG, TID
     Route: 048
     Dates: start: 20151208
  14. LENALIDOMIDE [Suspect]
     Active Substance: LENALIDOMIDE
     Indication: PLASMA CELL MYELOMA
     Dosage: 10 MG, QD
     Route: 048
     Dates: start: 20151110, end: 20151125
  15. TANATRIL [Concomitant]
     Active Substance: IMIDAPRIL
     Indication: HYPERTENSION
     Dosage: 5 MG, QD
     Route: 048
     Dates: start: 2005
  16. MEVALOTIN [Concomitant]
     Active Substance: PRAVASTATIN SODIUM
     Indication: HYPERLIPIDAEMIA
     Dosage: 10 MG, QD
     Route: 048
     Dates: start: 2005
  17. IXAZOMIB [Suspect]
     Active Substance: IXAZOMIB
     Indication: PLASMA CELL MYELOMA
     Dosage: UNK, 1/WEEK
     Route: 048
     Dates: start: 20151110, end: 20151208

REACTIONS (5)
  - Pneumonia aspiration [Not Recovered/Not Resolved]
  - Nervous system disorder [Not Recovered/Not Resolved]
  - Accidental overdose [Unknown]
  - Renal impairment [Recovered/Resolved]
  - Condition aggravated [Recovered/Resolved]

NARRATIVE: CASE EVENT DATE: 20151208
